FAERS Safety Report 4435901-1 (Version None)
Quarter: 2004Q4

REPORT INFORMATION
  Report Type: 
  Country: None (occurrence: None)
  Receive Date: 20040826
  Receipt Date: 20040818
  Transmission Date: 20050328
  Serious: Yes (Hospitalization)
  Sender: FDA-Public Use
  Company Number: 2004228978US

PATIENT
  Sex: Male

DRUGS (16)
  1. CELECOXIB (CODE NOT BROKEN) [Suspect]
     Indication: DEMENTIA ALZHEIMER'S TYPE
     Dates: end: 20040803
  2. GLYBURIDE [Concomitant]
  3. METFORMIN HCL [Concomitant]
  4. NITRO-BID [Concomitant]
  5. LIPITOR [Concomitant]
  6. METOPROLOL [Concomitant]
  7. LATANOPROST [Concomitant]
  8. FINASTERIDE [Concomitant]
  9. DOXAZOSIN [Concomitant]
  10. FUROSEMIDE [Concomitant]
  11. ASPIRIN [Concomitant]
  12. SAW PALMETTO [Concomitant]
  13. EXTRA STRENGTH TYLENOL [Concomitant]
  14. NITROGLYCERIN [Concomitant]
  15. LISINOPRIL [Concomitant]
  16. NAPROSYN [Suspect]

REACTIONS (1)
  - ATRIAL FIBRILLATION [None]
